FAERS Safety Report 19620455 (Version 2)
Quarter: 2021Q3

REPORT INFORMATION
  Report Type: Spontaneous
  Country: PT (occurrence: PT)
  Receive Date: 20210728
  Receipt Date: 20210805
  Transmission Date: 20211014
  Serious: Yes (Life-Threatening)
  Sender: FDA-Public Use
  Company Number: PT-ROCHE-2875364

PATIENT
  Age: 24 Year
  Sex: Male
  Weight: 57 kg

DRUGS (4)
  1. VENTILAN [Suspect]
     Active Substance: ALBUTEROL SULFATE
     Indication: PRODUCT USED FOR UNKNOWN INDICATION
     Dosage: 400 UG
     Route: 048
     Dates: start: 20210414, end: 20210414
  2. VALIUM [Suspect]
     Active Substance: DIAZEPAM
     Route: 065
  3. RIVOTRIL [Concomitant]
     Active Substance: CLONAZEPAM
  4. VALIUM [Suspect]
     Active Substance: DIAZEPAM
     Indication: ANXIETY
     Dosage: 15 MG (3 PILLS)
     Route: 065
     Dates: start: 20210414, end: 20210414

REACTIONS (7)
  - Tremor [Recovered/Resolved]
  - Epilepsy [Recovered/Resolved]
  - Hyperventilation [Recovered/Resolved]
  - Amnesia [Unknown]
  - Aphasia [Unknown]
  - Tachycardia [Recovered/Resolved]
  - Disturbance in attention [Unknown]

NARRATIVE: CASE EVENT DATE: 20210414
